FAERS Safety Report 25079435 (Version 1)
Quarter: 2025Q1

REPORT INFORMATION
  Report Type: Spontaneous
  Country: IL (occurrence: IL)
  Receive Date: 20250314
  Receipt Date: 20250314
  Transmission Date: 20250408
  Serious: Yes (Other)
  Sender: AMGEN
  Company Number: IL-AMGEN-ISRSP2025049572

PATIENT
  Sex: Female

DRUGS (1)
  1. PROLIA [Suspect]
     Active Substance: DENOSUMAB
     Indication: Osteoporosis
     Route: 058

REACTIONS (6)
  - Arrhythmia [Unknown]
  - Oedema [Unknown]
  - Wound [Unknown]
  - Mobility decreased [Unknown]
  - Impaired healing [Unknown]
  - Fall [Unknown]
